FAERS Safety Report 4920234-7 (Version None)
Quarter: 2006Q1

REPORT INFORMATION
  Report Type: 
  Country: None (occurrence: None)
  Receive Date: 20060217
  Receipt Date: 20060208
  Transmission Date: 20060701
  Serious: Yes (Hospitalization)
  Sender: FDA-Public Use
  Company Number: GXKR2006NL00853

PATIENT
  Age: 39 Year
  Sex: Male

DRUGS (4)
  1. ENALAPRIL (NGX)(ENALAPRIL MALEATE) TABLET [Suspect]
     Indication: HYPERTENSION
     Dosage: 10 MG,QD,ORAL
     Route: 048
     Dates: start: 20060113, end: 20060114
  2. METOPROLOL (METOPROLOL) [Concomitant]
  3. DICLOFENAC (DICLOFENAC) [Concomitant]
  4. OMEPRAZOLE [Concomitant]

REACTIONS (2)
  - HYPERVENTILATION [None]
  - TACHYCARDIA [None]
